FAERS Safety Report 9309611 (Version 2)
Quarter: 2014Q2

REPORT INFORMATION
  Report Type: Spontaneous
  Country: US (occurrence: US)
  Receive Date: 20130525
  Receipt Date: 20140510
  Transmission Date: 20141212
  Serious: No
  Sender: FDA-Public Use
  Company Number: US-BRISTOL-MYERS SQUIBB COMPANY-17483272

PATIENT
  Age: 66 Year
  Sex: Female

DRUGS (3)
  1. BYDUREON [Suspect]
     Indication: TYPE 2 DIABETES MELLITUS
     Dosage: EXENATIDE LONG ACTING RELEASE
     Route: 058
     Dates: start: 2013
  2. METFORMIN [Concomitant]
  3. WELCHOL [Concomitant]

REACTIONS (3)
  - Injection site haemorrhage [Unknown]
  - Injection site reaction [Not Recovered/Not Resolved]
  - Underdose [Recovered/Resolved]
